FAERS Safety Report 10203985 (Version 1)
Quarter: 2014Q2

REPORT INFORMATION
  Report Type: Spontaneous
  Country: US (occurrence: None)
  Receive Date: 20140523
  Receipt Date: 20140523
  Transmission Date: 20141212
  Serious: Yes (Hospitalization)
  Sender: FDA-Public Use
  Company Number: BR14-184-AE

PATIENT
  Age: 47 Year
  Sex: Female

DRUGS (1)
  1. NORETHINDRONE ACETATE [Suspect]
     Indication: MENOMETRORRHAGIA
     Dosage: SINCE  4 MONTHS
     Route: 048

REACTIONS (1)
  - Cerebrovascular accident [None]
